FAERS Safety Report 7908031 (Version 3)
Quarter: 2014Q2

REPORT INFORMATION
  Report Type: Report from Study
  Country: US (occurrence: US)
  Receive Date: 20110421
  Receipt Date: 20140604
  Transmission Date: 20141212
  Serious: Yes (Other)
  Sender: FDA-Public Use
  Company Number: PHHY2011US30056

PATIENT
  Age: 51 Year
  Sex: Female

DRUGS (16)
  1. DIOVAN [Suspect]
     Dosage: 1 DF (320MG) PER DAY
  2. DIOVAN HCT [Suspect]
     Indication: HYPERTENSION
     Dosage: 1 DF (VALS 320MG, HCTZ 12.5MG) QD
     Route: 048
  3. DIOVAN HCT [Suspect]
     Dosage: 1 DF (VALS 180MG, HCTZ 12.5MG)
     Route: 048
  4. TEKTURNA [Suspect]
     Indication: HYPERTENSION
     Dosage: 1 DF, 150 MG
     Route: 048
  5. METOPROLOL ER [Suspect]
     Dosage: 50 MG IN MORNING AND 100 MG IN EVENING
  6. GABAPENTIN [Concomitant]
     Dosage: UNK UKN, UNK
  7. HYDROCODONE [Concomitant]
     Dosage: UNK UKN, UNK
  8. LOVASTATIN [Concomitant]
     Dosage: UNK UKN, UNK
  9. CALCIUM [Concomitant]
     Dosage: UNK UKN, UNK
  10. MULTI-VIT [Concomitant]
     Dosage: UNK UKN, UNK
  11. BABY ASPIRIN [Concomitant]
     Dosage: UNK UKN, UNK
  12. ASA [Concomitant]
     Indication: HYPERTENSION
     Dosage: UNK UKN, UNK
  13. METOPROLOL [Concomitant]
     Dosage: UNK UKN, UNK
  14. DULOXETINE [Concomitant]
     Dosage: UNK UKN, UNK
  15. DICLOFENAC [Concomitant]
     Dosage: UNK UKN, UNK
  16. NEXIUM [Concomitant]
     Dosage: UNK UKN, UNK

REACTIONS (8)
  - Abdominal hernia [Unknown]
  - Abdominal pain upper [Not Recovered/Not Resolved]
  - Blood pressure increased [Recovered/Resolved]
  - Erythema [Unknown]
  - Pain [Not Recovered/Not Resolved]
  - Flushing [Recovered/Resolved]
  - Blood pressure inadequately controlled [Unknown]
  - Drug ineffective [Unknown]
